FAERS Safety Report 23467638 (Version 1)
Quarter: 2024Q1

REPORT INFORMATION
  Report Type: Spontaneous
  Country: FR (occurrence: FR)
  Receive Date: 20240201
  Receipt Date: 20240201
  Transmission Date: 20240410
  Serious: Yes (Other)
  Sender: FDA-Public Use
  Company Number: None

PATIENT
  Age: 53 Year
  Sex: Female

DRUGS (1)
  1. KEYTRUDA [Suspect]
     Active Substance: PEMBROLIZUMAB
     Indication: Triple negative breast cancer
     Dosage: 200 MILLIGRAM
     Route: 042
     Dates: start: 20230223

REACTIONS (3)
  - Asthenia [Recovered/Resolved]
  - Neutropenia [Recovered/Resolved]
  - Adrenal insufficiency [Recovered/Resolved]

NARRATIVE: CASE EVENT DATE: 20230412
